FAERS Safety Report 7406173-0 (Version None)
Quarter: 2011Q2

REPORT INFORMATION
  Report Type: 
  Country: None (occurrence: None)
  Receive Date: 20110411
  Receipt Date: 20110329
  Transmission Date: 20111010
  Serious: Yes (Other)
  Sender: FDA-Public Use
  Company Number: DE-BAYER-2011-000385

PATIENT
  Age: 41 Year
  Sex: Male

DRUGS (1)
  1. BETAFERON [Suspect]
     Indication: MULTIPLE SCLEROSIS
     Dosage: UNK
     Route: 058
     Dates: end: 20081201

REACTIONS (3)
  - INJECTION SITE NODULE [None]
  - PYODERMA GANGRENOSUM [None]
  - CALCINOSIS [None]
